FAERS Safety Report 4628890-8 (Version None)
Quarter: 2005Q2

REPORT INFORMATION
  Report Type: 
  Country: None (occurrence: None)
  Receive Date: 20050406
  Receipt Date: 20050325
  Transmission Date: 20051028
  Serious: Yes (Other)
  Sender: FDA-Public Use
  Company Number: 2005045735

PATIENT
  Age: 53 Year
  Sex: Female

DRUGS (8)
  1. CELEBREX [Suspect]
     Indication: ILL-DEFINED DISORDER
     Dosage: ORAL
     Route: 048
  2. BEXTRA [Suspect]
     Indication: MUSCULAR WEAKNESS
     Dosage: 20 MG (10 MG, 2 IN 1 D), ORAL
     Route: 048
     Dates: start: 20050314, end: 20050316
  3. BEXTRA [Suspect]
     Indication: MUSCULOSKELETAL DISORDER
     Dosage: 20 MG (10 MG, 2 IN 1 D), ORAL
     Route: 048
     Dates: start: 20050314, end: 20050316
  4. BEXTRA [Suspect]
     Indication: PAIN
     Dosage: 20 MG (10 MG, 2 IN 1 D), ORAL
     Route: 048
     Dates: start: 20050314, end: 20050316
  5. IBUPROFEN [Suspect]
     Indication: ILL-DEFINED DISORDER
  6. PROCAINE HCL [Suspect]
     Indication: ARTHRALGIA
  7. PROCAINE HCL [Suspect]
     Indication: ORTHODONTIC PROCEDURE
  8. DIAZEPAM [Concomitant]

REACTIONS (28)
  - ABASIA [None]
  - ANAESTHETIC COMPLICATION [None]
  - ARTHRALGIA [None]
  - CONNECTIVE TISSUE DISORDER [None]
  - DIARRHOEA [None]
  - DIZZINESS [None]
  - DYSURIA [None]
  - FEELING ABNORMAL [None]
  - FLANK PAIN [None]
  - GASTROINTESTINAL ULCER HAEMORRHAGE [None]
  - HOT FLUSH [None]
  - HYPERHIDROSIS [None]
  - INFLUENZA [None]
  - MENORRHAGIA [None]
  - MUSCULOSKELETAL DISORDER [None]
  - MYOSITIS [None]
  - OESOPHAGEAL PAIN [None]
  - OLIGOMENORRHOEA [None]
  - PAIN [None]
  - PAIN IN EXTREMITY [None]
  - POLYMYALGIA RHEUMATICA [None]
  - PSORIATIC ARTHROPATHY [None]
  - SOMNOLENCE [None]
  - TINNITUS [None]
  - TREMOR [None]
  - URINE ABNORMALITY [None]
  - VOMITING [None]
  - WEIGHT INCREASED [None]
